FAERS Safety Report 23124029 (Version 3)
Quarter: 2023Q4

REPORT INFORMATION
  Report Type: Spontaneous
  Country: GR (occurrence: GR)
  Receive Date: 20231030
  Receipt Date: 20231207
  Transmission Date: 20240110
  Serious: No
  Sender: FDA-Public Use
  Company Number: GR-PFIZER INC-PV202300165450

PATIENT
  Age: 15 Year
  Sex: Male
  Weight: 57 kg

DRUGS (2)
  1. GENOTROPIN [Suspect]
     Active Substance: SOMATROPIN
     Indication: Growth hormone deficiency
     Dosage: 11.4 MG (FOR 1 WEEK)
     Route: 058
     Dates: start: 202106
  2. GENOTROPIN [Suspect]
     Active Substance: SOMATROPIN
     Dosage: 11.6 MG (FOR THE 2ND WEEK / 7 DAYS)
     Route: 058
     Dates: start: 202106

REACTIONS (2)
  - Expired device used [Unknown]
  - Device use issue [Unknown]
